FAERS Safety Report 6150326-9 (Version None)
Quarter: 2009Q2

REPORT INFORMATION
  Report Type: 
  Country: None (occurrence: None)
  Receive Date: 20090407
  Receipt Date: 20090324
  Transmission Date: 20091009
  Serious: Yes (Hospitalization)
  Sender: FDA-Public Use
  Company Number: GXKR2009AU03830

PATIENT
  Age: 58 Year
  Sex: Female

DRUGS (2)
  1. CLOZAPINE [Suspect]
     Indication: SCHIZOAFFECTIVE DISORDER
     Dosage: 150 MG, DAILY
  2. VALPROATE SODIUM [Concomitant]

REACTIONS (14)
  - AGITATION [None]
  - AUTONOMIC NERVOUS SYSTEM IMBALANCE [None]
  - CATATONIA [None]
  - DIARRHOEA [None]
  - DRUG WITHDRAWAL SYNDROME [None]
  - FAECAL INCONTINENCE [None]
  - HYPERHIDROSIS [None]
  - MUTISM [None]
  - MYOCLONUS [None]
  - POSTURING [None]
  - PYREXIA [None]
  - STEREOTYPY [None]
  - STUPOR [None]
  - URINARY INCONTINENCE [None]
